FAERS Safety Report 7622896-2 (Version None)
Quarter: 2011Q3

REPORT INFORMATION
  Report Type: 
  Country: None (occurrence: None)
  Receive Date: 20110719
  Receipt Date: 20110719
  Transmission Date: 20111222
  Serious: No
  Sender: FDA-Public Use
  Company Number: None

PATIENT
  Sex: Male

DRUGS (1)
  1. SIMPONI [Suspect]
     Dosage: 50MG MONTHLY SQ
     Route: 058
     Dates: start: 20110416, end: 20110713

REACTIONS (2)
  - UVEITIS [None]
  - PAIN [None]
